FAERS Safety Report 5376775-4 (Version None)
Quarter: 2007Q3

REPORT INFORMATION
  Report Type: 
  Country: None (occurrence: None)
  Receive Date: 20070703
  Receipt Date: 20070622
  Transmission Date: 20080115
  Serious: Yes (Hospitalization)
  Sender: FDA-Public Use
  Company Number: US-AVENTIS-200714719US

PATIENT
  Sex: Female

DRUGS (1)
  1. LOVENOX [Suspect]
     Dosage: DOSE: UNK

REACTIONS (2)
  - DRUG EXPOSURE DURING PREGNANCY [None]
  - EMBOLIC STROKE [None]
